FAERS Safety Report 8189257-1 (Version None)
Quarter: 2012Q1

REPORT INFORMATION
  Report Type: 
  Country: None (occurrence: None)
  Receive Date: 20120307
  Receipt Date: 20120224
  Transmission Date: 20120608
  Serious: Yes (Hospitalization)
  Sender: FDA-Public Use
  Company Number: CA-ELI_LILLY_AND_COMPANY-CA201202007546

PATIENT
  Age: 54 Year
  Sex: Female

DRUGS (12)
  1. PREDNISONE TAB [Concomitant]
  2. ESTROGEL [Concomitant]
  3. ACYCLOVIR [Concomitant]
  4. FORTEO [Suspect]
     Indication: OSTEOPOROSIS
     Dosage: 20 UG, QD
     Route: 058
     Dates: start: 20110614
  5. VITAMIN D [Concomitant]
  6. FERROUS GLUCONATE [Concomitant]
  7. FAMVIR [Concomitant]
  8. CALCIUM [Concomitant]
  9. TUMS                               /00751519/ [Concomitant]
  10. HUMIRA [Concomitant]
  11. IMODIUM [Concomitant]
  12. PROMETRIUM [Concomitant]

REACTIONS (1)
  - HOSPITALISATION [None]
